FAERS Safety Report 4633916-1 (Version None)
Quarter: 2005Q1

REPORT INFORMATION
  Report Type: 
  Country: None (occurrence: None)
  Receive Date: 20050325
  Receipt Date: 20050124
  Transmission Date: 20050727
  Serious: No
  Sender: FDA-Public Use
  Company Number: USA041287190

PATIENT
  Age: 69 Year
  Sex: Female

DRUGS (6)
  1. FORTEO [Suspect]
     Indication: OSTEOPOROSIS
     Dates: start: 20041001, end: 20041225
  2. NORVASC [Concomitant]
  3. HYZAAR [Concomitant]
  4. TRAVATAN [Concomitant]
  5. ALPHAGAN P [Concomitant]
  6. TRUSOPT [Concomitant]

REACTIONS (10)
  - ANORECTAL DISORDER [None]
  - BALANCE DISORDER [None]
  - BLOOD PRESSURE DECREASED [None]
  - DIZZINESS [None]
  - DRUG INTOLERANCE [None]
  - FREQUENT BOWEL MOVEMENTS [None]
  - INJECTION SITE HAEMORRHAGE [None]
  - INTESTINAL FUNCTIONAL DISORDER [None]
  - NERVOUSNESS [None]
  - SCRATCH [None]
